FAERS Safety Report 5399832-5 (Version None)
Quarter: 2007Q3

REPORT INFORMATION
  Report Type: 
  Country: None (occurrence: None)
  Receive Date: 20070730
  Receipt Date: 20070723
  Transmission Date: 20080115
  Serious: Yes (Hospitalization, Other)
  Sender: FDA-Public Use
  Company Number: PHNU2006DE00885

PATIENT
  Age: 28 Year
  Sex: Female

DRUGS (4)
  1. LEPONEX [Suspect]
     Indication: SCHIZOPHRENIA
     Dosage: 150 MG/DAY
     Route: 048
     Dates: start: 20040701, end: 20060321
  2. LEPONEX [Suspect]
     Dosage: 50 MG/DAY
     Route: 048
     Dates: start: 20060427
  3. FLUOXETINE [Concomitant]
     Indication: DEPRESSION
     Dosage: 20 MG/DAY
     Route: 048
     Dates: start: 20040701, end: 20060308
  4. ZOLPIDEM TARTRATE [Concomitant]
     Dosage: 20 MG/DAY
     Route: 048
     Dates: start: 20050518, end: 20060127

REACTIONS (3)
  - BREECH PRESENTATION [None]
  - CAESAREAN SECTION [None]
  - DRUG EXPOSURE DURING PREGNANCY [None]
